FAERS Safety Report 4688728-X (Version None)
Quarter: 2005Q2

REPORT INFORMATION
  Report Type: 
  Country: None (occurrence: None)
  Receive Date: 20050609
  Receipt Date: 20050609
  Transmission Date: 20051028
  Serious: Yes (Hospitalization)
  Sender: FDA-Public Use
  Company Number: None

PATIENT
  Age: 25 Year
  Sex: Male
  Weight: 66 kg

DRUGS (1)
  1. SOLU-MEDROL [Suspect]
     Indication: ACUTE RESPIRATORY FAILURE
     Dosage: 125 MG Q 6 H 1/1-1/14 THEN 60 MG Q8
     Dates: start: 20050101, end: 20050114

REACTIONS (2)
  - ASTHENIA [None]
  - MYOPATHY [None]
